FAERS Safety Report 19085365 (Version 1)
Quarter: 2021Q2

REPORT INFORMATION
  Report Type: Report from Study
  Country: IN (occurrence: IN)
  Receive Date: 20210402
  Receipt Date: 20210402
  Transmission Date: 20210717
  Serious: Yes (Other)
  Sender: FDA-Public Use
  Company Number: IN-SUN PHARMACEUTICAL INDUSTRIES LTD-2021R1-288613

PATIENT

DRUGS (2)
  1. MANGIFERIN [Interacting]
     Active Substance: MANGIFERIN
     Indication: DIABETES MELLITUS
     Dosage: UNK
     Route: 065
  2. REPAGLINIDE. [Suspect]
     Active Substance: REPAGLINIDE
     Indication: DIABETES MELLITUS
     Dosage: UNK
     Route: 065

REACTIONS (4)
  - Hypoglycaemia [Unknown]
  - Ischaemia [Unknown]
  - Drug interaction [Unknown]
  - Angina pectoris [Unknown]
